FAERS Safety Report 8465620-6 (Version None)
Quarter: 2012Q2

REPORT INFORMATION
  Report Type: 
  Country: None (occurrence: None)
  Receive Date: 20120621
  Receipt Date: 20120621
  Transmission Date: 20120825
  Serious: No
  Sender: FDA-Public Use
  Company Number: None

PATIENT
  Age: 77 Year
  Sex: Male

DRUGS (9)
  1. ATENOLOL [Concomitant]
  2. LISINOPRIL [Concomitant]
  3. REVLIMID [Concomitant]
  4. LEVITRA [Concomitant]
  5. REVLIMID [Suspect]
     Indication: MULTIPLE MYELOMA
     Dosage: 25MG QDX21D/28D ORALLY
     Route: 048
     Dates: start: 20110801, end: 20120501
  6. FINASTERIDE [Concomitant]
  7. DONAPEZIL [Concomitant]
  8. MELOXICAM [Concomitant]
  9. TERAZOSIN HCL [Concomitant]

REACTIONS (2)
  - ANAEMIA [None]
  - LEUKOPENIA [None]
